FAERS Safety Report 6854980-5 (Version None)
Quarter: 2010Q3

REPORT INFORMATION
  Report Type: 
  Country: None (occurrence: None)
  Receive Date: 20100717
  Receipt Date: 20080421
  Transmission Date: 20110219
  Serious: Yes (Other)
  Sender: FDA-Public Use
  Company Number: PFIZER INC-2008000874

PATIENT
  Sex: Female

DRUGS (1)
  1. CHANTIX [Suspect]
     Dates: end: 20080205

REACTIONS (8)
  - BLOOD TRIGLYCERIDES INCREASED [None]
  - CHROMATURIA [None]
  - GALLBLADDER DISORDER [None]
  - HEPATOMEGALY [None]
  - NAUSEA [None]
  - OCULAR ICTERUS [None]
  - PANCREATIC DISORDER [None]
  - RENAL DISORDER [None]
